FAERS Safety Report 9785133 (Version 2)
Quarter: 2014Q1

REPORT INFORMATION
  Report Type: Spontaneous
  Country: AU (occurrence: AU)
  Receive Date: 20131227
  Receipt Date: 20140124
  Transmission Date: 20141002
  Serious: Yes (Life-Threatening, Hospitalization)
  Sender: FDA-Public Use
  Company Number: AU-ASTRAZENECA-2013SE92486

PATIENT
  Age: 82 Year
  Sex: Male

DRUGS (9)
  1. COSUDEX [Suspect]
     Indication: PROSTATE CANCER
     Route: 048
     Dates: start: 20131001, end: 20131010
  2. CLOPIDOGREL [Concomitant]
  3. ROSUVASTATIN [Concomitant]
  4. PANTAPRAZOLE [Concomitant]
  5. LASIX [Concomitant]
  6. FERRO-F [Concomitant]
  7. CALTRATE [Concomitant]
  8. CARPAL [Concomitant]
  9. PALADO XR [Concomitant]

REACTIONS (6)
  - Renal failure acute [Not Recovered/Not Resolved]
  - Memory impairment [Unknown]
  - Hypokinesia [Unknown]
  - Dyspnoea [Not Recovered/Not Resolved]
  - Asthenia [Unknown]
  - Lethargy [Not Recovered/Not Resolved]
